FAERS Safety Report 6087628-0 (Version None)
Quarter: 2009Q1

REPORT INFORMATION
  Report Type: 
  Country: None (occurrence: None)
  Receive Date: 20090223
  Receipt Date: 20090213
  Transmission Date: 20090719
  Serious: Yes (Other)
  Sender: FDA-Public Use
  Company Number: US-ABBOTT-09P-163-0557359-00

PATIENT
  Sex: Female
  Weight: 90.8 kg

DRUGS (8)
  1. HUMIRA [Suspect]
     Indication: RHEUMATOID ARTHRITIS
     Route: 058
     Dates: start: 20070219, end: 20080208
  2. HUMIRA [Suspect]
     Route: 058
     Dates: start: 20080805
  3. NEXIUM [Concomitant]
     Indication: GASTROOESOPHAGEAL REFLUX DISEASE
     Route: 048
  4. ESTROGEN REPLACEMENT [Concomitant]
     Indication: HORMONE REPLACEMENT THERAPY
     Dosage: 1.25 ESTROGEN /1.25 TESTOSTERONE
     Route: 048
  5. NITROFURANTOIN [Concomitant]
     Indication: CYSTITIS
     Dosage: EVERY DAY AT BEDTIME
     Route: 048
  6. NITROFURANTOIN [Concomitant]
     Indication: KIDNEY INFECTION
  7. VITAMIN B COMPLEX CAP [Concomitant]
     Indication: HOT FLUSH
     Route: 048
  8. PLAQUENIL [Concomitant]
     Indication: RHEUMATOID ARTHRITIS
     Route: 048

REACTIONS (1)
  - CYST [None]
